FAERS Safety Report 8941607 (Version 1)
Quarter: 2012Q4

REPORT INFORMATION
  Report Type: Report from Study
  Country: US (occurrence: US)
  Receive Date: 20121203
  Receipt Date: 20121203
  Transmission Date: 20130627
  Serious: Yes (Hospitalization)
  Sender: FDA-Public Use
  Company Number: US-CELGENEUS-163-21880-12112967

PATIENT
  Age: 70 Year
  Sex: Male
  Weight: 87.09 kg

DRUGS (4)
  1. REVLIMID [Suspect]
     Indication: MULTIPLE MYELOMA
     Dosage: 75 Milligram
     Route: 065
     Dates: start: 20121025, end: 20121028
  2. REVLIMID [Suspect]
     Dosage: 100 Milligram
     Route: 065
     Dates: start: 20121025, end: 20121028
  3. REVLIMID [Suspect]
     Dosage: 100 milligram/sq. meter
     Route: 065
     Dates: start: 20121029, end: 20121030
  4. MELPHALAN [Suspect]
     Indication: MULTIPLE MYELOMA
     Route: 065
     Dates: start: 20121029, end: 20121030

REACTIONS (1)
  - Urinary retention [Unknown]
